FAERS Safety Report 24822644 (Version 1)
Quarter: 2025Q1

REPORT INFORMATION
  Report Type: Spontaneous
  Country: US (occurrence: US)
  Receive Date: 20250109
  Receipt Date: 20250109
  Transmission Date: 20250409
  Serious: Yes (Other)
  Sender: BEIGENE
  Company Number: US-BEIGENE-BGN-2025-000201

PATIENT

DRUGS (2)
  1. BRUKINSA [Suspect]
     Active Substance: ZANUBRUTINIB
     Indication: Chronic lymphocytic leukaemia
  2. VALSARTAN [Concomitant]
     Active Substance: VALSARTAN

REACTIONS (4)
  - Lymph node rupture [Unknown]
  - Wound [Unknown]
  - Lymphadenopathy [Unknown]
  - Swelling [Unknown]

NARRATIVE: CASE EVENT DATE: 20240804
